FAERS Safety Report 6607993-2 (Version None)
Quarter: 2010Q1

REPORT INFORMATION
  Report Type: 
  Country: None (occurrence: None)
  Receive Date: 20100212
  Receipt Date: 20091116
  Transmission Date: 20100710
  Serious: No
  Sender: FDA-Public Use
  Company Number: 1000009713

PATIENT
  Age: 66 Year
  Sex: Female

DRUGS (7)
  1. SAVELLA [Suspect]
     Indication: FIBROMYALGIA
  2. ATENOLOL [Concomitant]
  3. ACIPHEX [Concomitant]
  4. RED YEAST RICE EXTRACT [Concomitant]
  5. MAGNESIUM OXIDE [Concomitant]
  6. NASONEX [Concomitant]
  7. SINUS RINSE [Concomitant]

REACTIONS (2)
  - CRYING [None]
  - FATIGUE [None]
